FAERS Safety Report 6023141-4 (Version None)
Quarter: 2008Q4

REPORT INFORMATION
  Report Type: 
  Country: None (occurrence: None)
  Receive Date: 20081230
  Receipt Date: 20081222
  Transmission Date: 20090506
  Serious: Yes (Life-Threatening)
  Sender: FDA-Public Use
  Company Number: US-JNJFOC-20081103804

PATIENT
  Sex: Male
  Weight: 78.02 kg

DRUGS (6)
  1. REMICADE [Suspect]
     Indication: RHEUMATOID ARTHRITIS
     Route: 042
  2. LISINOPRIL AND HYDROCHLOROTHIAZIDE [Concomitant]
     Indication: HYPERTENSION
  3. ATENOLOL [Concomitant]
     Indication: HYPERTENSION
  4. GLUCOTROL [Concomitant]
     Indication: DIABETES MELLITUS
  5. ASPIRIN [Concomitant]
     Indication: PAIN
  6. ACETAMINOPHEN [Concomitant]
     Indication: PAIN

REACTIONS (1)
  - PANCREATIC CARCINOMA [None]
